FAERS Safety Report 11230611 (Version 2)
Quarter: 2015Q3

REPORT INFORMATION
  Report Type: Spontaneous
  Country: JP (occurrence: None)
  Receive Date: 20150629
  Receipt Date: 20150720
  Transmission Date: 20151125
  Serious: Yes (Other)
  Sender: FDA-Public Use
  Company Number: 2015FE02062

PATIENT
  Age: 39 Year
  Sex: Female

DRUGS (2)
  1. HERBAL NOS [Concomitant]
     Active Substance: HERBALS
  2. LUTINUS [Suspect]
     Active Substance: PROGESTERONE
     Indication: ASSISTED FERTILISATION
     Route: 067
     Dates: start: 20150219, end: 20150301

REACTIONS (3)
  - Thrombosis [None]
  - Eczema [None]
  - Breast swelling [None]

NARRATIVE: CASE EVENT DATE: 201502
